FAERS Safety Report 4291415-3 (Version None)
Quarter: 2004Q1

REPORT INFORMATION
  Report Type: 
  Country: None (occurrence: None)
  Receive Date: 20040211
  Receipt Date: 20031211
  Transmission Date: 20041129
  Serious: Yes (Hospitalization)
  Sender: FDA-Public Use
  Company Number: PHBS2003NZ13864

PATIENT
  Sex: Female

DRUGS (3)
  1. CLOZARIL [Suspect]
     Indication: SCHIZOPHRENIA
     Dosage: 400 MG/D
     Route: 048
  2. CLOZARIL [Suspect]
     Dosage: 100 MG MANE, 400 MG NOCTE
     Route: 048
  3. WARFARIN SODIUM [Concomitant]
     Indication: PULMONARY EMBOLISM
     Route: 065

REACTIONS (4)
  - CELLULITIS [None]
  - DEEP VEIN THROMBOSIS [None]
  - PLATELET COUNT INCREASED [None]
  - PULMONARY EMBOLISM [None]
